FAERS Safety Report 17432711 (Version 3)
Quarter: 2020Q1

REPORT INFORMATION
  Report Type: Report from Study
  Country: US (occurrence: US)
  Receive Date: 20200218
  Receipt Date: 20200310
  Transmission Date: 20200409
  Serious: Yes (Hospitalization)
  Sender: FDA-Public Use
  Company Number: US-BEH-2020113308

PATIENT
  Age: 51 Year
  Sex: Female
  Weight: 109.3 kg

DRUGS (2)
  1. HIZENTRA [Suspect]
     Active Substance: HUMAN IMMUNOGLOBULIN G
     Indication: HYPOGAMMAGLOBULINAEMIA
     Dosage: 16 GRAM, QW
     Route: 058
     Dates: start: 20200210
  2. IMITREX [Concomitant]
     Active Substance: SUMATRIPTAN SUCCINATE

REACTIONS (6)
  - Pyrexia [Recovered/Resolved]
  - No adverse event [Unknown]
  - Back pain [Unknown]
  - Headache [Unknown]
  - Product supply issue [Unknown]
  - Influenza [Recovered/Resolved]

NARRATIVE: CASE EVENT DATE: 20200210
